FAERS Safety Report 6311132-5 (Version None)
Quarter: 2009Q3

REPORT INFORMATION
  Report Type: 
  Country: None (occurrence: None)
  Receive Date: 20090817
  Receipt Date: 20090805
  Transmission Date: 20100115
  Serious: Yes (Hospitalization)
  Sender: FDA-Public Use
  Company Number: US-ELI_LILLY_AND_COMPANY-US200907005110

PATIENT
  Sex: Male
  Weight: 92.789 kg

DRUGS (12)
  1. PEMETREXED [Suspect]
     Indication: NON-SMALL CELL LUNG CANCER
     Dosage: 820 MG, OTHER
     Route: 042
     Dates: start: 20090304, end: 20090626
  2. GEMCITABINE HCL [Suspect]
     Indication: NON-SMALL CELL LUNG CANCER
     Dosage: 2470 MG, UNK
     Route: 042
     Dates: start: 20090304, end: 20090626
  3. BEVACIZUMAB [Suspect]
     Indication: NON-SMALL CELL LUNG CANCER
     Dosage: 893 MG, UNK
     Route: 042
     Dates: start: 20090304, end: 20090626
  4. FOLIC ACID [Concomitant]
     Dosage: 1 MG, DAILY (1/D)
     Route: 048
     Dates: start: 20090218
  5. VITAMIN B-12 [Concomitant]
     Dates: start: 20090218, end: 20090508
  6. GLIPIZIDE [Concomitant]
     Dosage: 10 MG, DAILY (1/D)
     Route: 048
     Dates: start: 20061001
  7. RESTASIS [Concomitant]
     Dosage: 1 D/F, 2/D
     Route: 047
     Dates: start: 20071101
  8. ADVAIR HFA [Concomitant]
  9. SINGULAIR [Concomitant]
     Dosage: 10 MG, DAILY (1/D)
  10. PROTONIX [Concomitant]
     Dosage: 40 MG, AS NEEDED
     Dates: start: 19990101
  11. LASIX [Concomitant]
     Dosage: 40 MG, 2/D
     Route: 048
     Dates: start: 20090612
  12. HYDROCHLOROTHIAZIDE [Concomitant]
     Dosage: UNK, DAILY (1/D)
     Route: 048
     Dates: start: 20041001

REACTIONS (1)
  - DYSPNOEA [None]
